FAERS Safety Report 6342342-9 (Version None)
Quarter: 2009Q3

REPORT INFORMATION
  Report Type: 
  Country: None (occurrence: None)
  Receive Date: 20090907
  Receipt Date: 20090828
  Transmission Date: 20100115
  Serious: Yes (Other)
  Sender: FDA-Public Use
  Company Number: BR-PFIZER INC-2009261308

PATIENT
  Age: 38 Year

DRUGS (2)
  1. DEPO-PROVERA [Suspect]
     Indication: CONTRACEPTION
     Dosage: 1 APPLICATION, EVERY 3 MONTHS
     Route: 030
     Dates: start: 20060101
  2. RIVOTRIL [Concomitant]
     Dosage: 2 MG, UNK
     Dates: start: 20040101

REACTIONS (4)
  - CARPAL TUNNEL SYNDROME [None]
  - DIARRHOEA [None]
  - METRORRHAGIA [None]
  - OBESITY SURGERY [None]
